FAERS Safety Report 8145836-9 (Version None)
Quarter: 2012Q1

REPORT INFORMATION
  Report Type: 
  Country: None (occurrence: None)
  Receive Date: 20120217
  Receipt Date: 20110408
  Transmission Date: 20120608
  Serious: No
  Sender: FDA-Public Use
  Company Number: US-ABBOTT-11P-163-0718048-00

PATIENT
  Sex: Male
  Weight: 71.732 kg

DRUGS (3)
  1. SIMCOR [Suspect]
     Dosage: AT HOUR OF SLEEP
     Route: 048
     Dates: start: 20090101, end: 20110405
  2. RAMIPRIL [Concomitant]
     Indication: HYPERTENSION
  3. SIMCOR [Suspect]
     Indication: BLOOD CHOLESTEROL INCREASED
     Dosage: AT HOUR OF SLEEP
     Route: 048
     Dates: start: 20110405

REACTIONS (1)
  - DIZZINESS [None]
